FAERS Safety Report 20853697 (Version 1)
Quarter: 2022Q2

REPORT INFORMATION
  Report Type: Spontaneous
  Country: PT (occurrence: PT)
  Receive Date: 20220520
  Receipt Date: 20220520
  Transmission Date: 20220721
  Serious: Yes (Life-Threatening, Other)
  Sender: FDA-Public Use
  Company Number: PT-drreddys-LIT/POR/22/0150108

PATIENT
  Age: 7 Year
  Sex: Male

DRUGS (3)
  1. AZACITIDINE [Suspect]
     Active Substance: AZACITIDINE
     Indication: Myelodysplastic syndrome
     Dosage: FOR FIVE CONSECUTIVE DAYS (CYCLE-1)
  2. AZACITIDINE [Suspect]
     Active Substance: AZACITIDINE
     Dosage: WITH SEVEN CONSECUTIVE DAYS IN CYCLES OF 28 DAYS AND IN COMBINATION WITH DEXAMETHASONE?COMPLETED 8 C
  3. DEXAMETHASONE [Suspect]
     Active Substance: DEXAMETHASONE
     Indication: Product used for unknown indication

REACTIONS (2)
  - Pericardial effusion [Recovered/Resolved]
  - Acute myeloid leukaemia [Recovered/Resolved]
